FAERS Safety Report 6007939-4 (Version None)
Quarter: 2008Q4

REPORT INFORMATION
  Report Type: 
  Country: None (occurrence: None)
  Receive Date: 20081217
  Receipt Date: 20080813
  Transmission Date: 20090506
  Serious: No
  Sender: FDA-Public Use
  Company Number: US-ASTRAZENECA-2008UW12066

PATIENT
  Age: 59 Year
  Sex: Female
  Weight: 83.9 kg

DRUGS (5)
  1. CRESTOR [Suspect]
     Indication: BLOOD CHOLESTEROL INCREASED
     Dosage: ONE HALF TABLET
     Route: 048
     Dates: start: 20080101, end: 20080101
  2. CRESTOR [Suspect]
     Route: 048
     Dates: start: 20080101
  3. DIOVAN [Concomitant]
     Dates: end: 20080101
  4. FLAXSEED OIL [Concomitant]
  5. RESTASIS [Concomitant]

REACTIONS (4)
  - ASTHENIA [None]
  - DIZZINESS [None]
  - HEART RATE INCREASED [None]
  - HYPOTENSION [None]
